FAERS Safety Report 19470902 (Version 2)
Quarter: 2021Q3

REPORT INFORMATION
  Report Type: Spontaneous
  Country: DE (occurrence: DE)
  Receive Date: 20210628
  Receipt Date: 20210818
  Transmission Date: 20211014
  Serious: Yes (Hospitalization, Other)
  Sender: FDA-Public Use
  Company Number: NVSC2021DE140466

PATIENT
  Sex: Male

DRUGS (17)
  1. ENTRESTO [Suspect]
     Active Substance: SACUBITRIL\VALSARTAN
     Indication: CARDIOMYOPATHY
  2. DEKRISTOL [Concomitant]
     Active Substance: CHOLECALCIFEROL
     Indication: PRODUCT USED FOR UNKNOWN INDICATION
     Dosage: 1 DF, QW (MONDAY)
     Route: 065
  3. AMLODIPINE [Concomitant]
     Active Substance: AMLODIPINE BESYLATE
     Indication: HYPERTENSION
     Dosage: 1 DF, QD
     Route: 065
  4. CARVEDILOL. [Concomitant]
     Active Substance: CARVEDILOL
     Indication: HYPERTENSION
     Dosage: 1 DF, (1?1/2?1), TID
     Route: 065
  5. FOSRENOL [Concomitant]
     Active Substance: LANTHANUM CARBONATE
     Indication: PRODUCT USED FOR UNKNOWN INDICATION
     Dosage: 1 DF, (TO THE MEAL), TID
     Route: 065
  6. CARVEDILOL. [Concomitant]
     Active Substance: CARVEDILOL
     Indication: PULSE ABNORMAL
  7. PROCORALAN [Concomitant]
     Active Substance: IVABRADINE
     Indication: PULSE ABNORMAL
     Dosage: 1 DF, (1/2?0?1/2) WITH MEAL, BID
     Route: 065
  8. TORASEMIDE [Concomitant]
     Active Substance: TORSEMIDE
     Indication: FLUID RETENTION
     Dosage: 1 DF, QD
     Route: 065
     Dates: start: 202002, end: 2021
  9. CRATAEGUTT NOVO [Concomitant]
     Active Substance: CRATAEGUS LAEVIGATA FLOWERING TOP
     Indication: PRODUCT USED FOR UNKNOWN INDICATION
     Dosage: 1 DF, BID
     Route: 065
  10. ALLOPURINOL. [Concomitant]
     Active Substance: ALLOPURINOL
     Indication: BLOOD URIC ACID
     Dosage: 1 DF, QD
     Route: 065
  11. ENTRESTO [Suspect]
     Active Substance: SACUBITRIL\VALSARTAN
     Indication: CARDIAC FAILURE
     Dosage: 200 MG, (97/103 MG), BID
     Route: 065
     Dates: end: 2021
  12. NEPRESOL FORTE [Concomitant]
     Indication: HYPERTENSION
     Dosage: UNK UNK, QD
     Route: 065
  13. INEGY [Concomitant]
     Active Substance: EZETIMIBE\SIMVASTATIN
     Indication: BLOOD PARATHYROID HORMONE ABNORMAL
     Dosage: 1.5 DF, (30 MINUTES BEFORE BREAKFAST), QD
     Route: 065
  14. MOXONIDINE [Concomitant]
     Active Substance: MOXONIDINE
     Indication: PRODUCT USED FOR UNKNOWN INDICATION
     Dosage: 1 DF, BID
     Route: 065
     Dates: start: 202006
  15. EPLERENONE. [Concomitant]
     Active Substance: EPLERENONE
     Indication: PRODUCT USED FOR UNKNOWN INDICATION
     Dosage: UNK, QD
     Route: 065
  16. DOXAZOSIN [Concomitant]
     Active Substance: DOXAZOSIN MESYLATE
     Indication: HYPERTENSION
     Dosage: 0.5 DF, (0?1/2?0?1), BID
     Route: 065
  17. L?THYROXIN HENNING [Concomitant]
     Active Substance: LEVOTHYROXINE SODIUM
     Indication: PRODUCT USED FOR UNKNOWN INDICATION
     Dosage: 1.5 DF, QD
     Route: 065

REACTIONS (18)
  - Nephrogenic anaemia [Not Recovered/Not Resolved]
  - Product use in unapproved indication [Unknown]
  - Hyperkalaemia [Unknown]
  - Hyperparathyroidism secondary [Recovering/Resolving]
  - Blood calcium decreased [Not Recovered/Not Resolved]
  - Blood creatine phosphokinase increased [Unknown]
  - Bacterial test positive [Unknown]
  - Renal haemorrhage [Recovered/Resolved with Sequelae]
  - Hypercholesterolaemia [Unknown]
  - White blood cell count decreased [Recovered/Resolved]
  - Epstein-Barr virus antibody positive [Unknown]
  - Urine output decreased [Unknown]
  - Metabolic acidosis [Unknown]
  - Renal cyst [Unknown]
  - Oedema [Unknown]
  - Renal hypertension [Unknown]
  - Vitamin D deficiency [Recovered/Resolved]
  - Hyponatraemia [Recovered/Resolved]

NARRATIVE: CASE EVENT DATE: 20160224
